FAERS Safety Report 15459569 (Version 3)
Quarter: 2019Q1

REPORT INFORMATION
  Report Type: Report from Study
  Country: JP (occurrence: JP)
  Receive Date: 20181003
  Receipt Date: 20190228
  Transmission Date: 20190417
  Serious: Yes (Other)
  Sender: FDA-Public Use
  Company Number: JP-CLINIGEN GROUP PLC/ CLINIGEN HEALTHCARE LTD-JP-CLGN-18-00380

PATIENT
  Age: 1 Year
  Sex: Male

DRUGS (3)
  1. SAVENE [Suspect]
     Active Substance: DEXRAZOXANE
     Indication: CHEMOTHERAPY CARDIOTOXICITY ATTENUATION
     Route: 041
     Dates: start: 20180824, end: 20180825
  2. SAVENE [Suspect]
     Active Substance: DEXRAZOXANE
     Route: 042
     Dates: start: 20181126, end: 20181127
  3. SAVENE [Suspect]
     Active Substance: DEXRAZOXANE
     Route: 041
     Dates: start: 20190118, end: 20190119

REACTIONS (1)
  - Off label use [Unknown]
